FAERS Safety Report 18128092 (Version 2)
Quarter: 2020Q3

REPORT INFORMATION
  Report Type: Spontaneous
  Country: US (occurrence: US)
  Receive Date: 20200810
  Receipt Date: 20200901
  Transmission Date: 20201103
  Serious: No
  Sender: FDA-Public Use
  Company Number: US-SHIRE-US202025587

PATIENT
  Sex: Female

DRUGS (8)
  1. GATTEX [Suspect]
     Active Substance: TEDUGLUTIDE\WATER
     Indication: SHORT-BOWEL SYNDROME
     Dosage: 3.74 MILLIGRAM, 1X/DAY:QD
     Route: 065
     Dates: start: 20200805
  2. GATTEX [Suspect]
     Active Substance: TEDUGLUTIDE\WATER
     Dosage: 3.74 MILLIGRAM, 1X/DAY:QD
     Route: 065
  3. GATTEX [Suspect]
     Active Substance: TEDUGLUTIDE\WATER
     Indication: SHORT-BOWEL SYNDROME
     Dosage: 3.74 MILLIGRAM, 1X/DAY:QD
     Route: 065
     Dates: start: 20200805
  4. GATTEX [Suspect]
     Active Substance: TEDUGLUTIDE\WATER
     Indication: SHORT-BOWEL SYNDROME
     Dosage: 3.74 MILLIGRAM, 1X/DAY:QD
     Route: 065
     Dates: start: 20200805
  5. GATTEX [Suspect]
     Active Substance: TEDUGLUTIDE\WATER
     Indication: SHORT-BOWEL SYNDROME
     Dosage: 3.74 MILLIGRAM, 1X/DAY:QD
     Route: 065
     Dates: start: 20200805
  6. GATTEX [Suspect]
     Active Substance: TEDUGLUTIDE\WATER
     Dosage: 3.74 MILLIGRAM, 1X/DAY:QD
     Route: 065
  7. GATTEX [Suspect]
     Active Substance: TEDUGLUTIDE\WATER
     Dosage: 3.74 MILLIGRAM, 1X/DAY:QD
     Route: 065
  8. GATTEX [Suspect]
     Active Substance: TEDUGLUTIDE\WATER
     Dosage: 3.74 MILLIGRAM, 1X/DAY:QD
     Route: 065

REACTIONS (3)
  - Respiratory rate increased [Recovered/Resolved]
  - Cough [Recovered/Resolved]
  - Cystitis [Unknown]
